FAERS Safety Report 11232153 (Version 2)
Quarter: 2015Q3

REPORT INFORMATION
  Report Type: Spontaneous
  Country: US (occurrence: US)
  Receive Date: 20150701
  Receipt Date: 20150731
  Transmission Date: 20151125
  Serious: No
  Sender: FDA-Public Use
  Company Number: US-PFIZER INC-2015217968

PATIENT

DRUGS (1)
  1. CHANTIX [Suspect]
     Active Substance: VARENICLINE TARTRATE
     Dosage: UNK

REACTIONS (6)
  - Mood altered [Unknown]
  - Malaise [Unknown]
  - Nausea [Unknown]
  - Headache [Unknown]
  - Insomnia [Unknown]
  - Vomiting [Unknown]
